FAERS Safety Report 9630804 (Version 1)
Quarter: 2013Q4

REPORT INFORMATION
  Report Type: Spontaneous
  Country: DE (occurrence: None)
  Receive Date: 20131011
  Receipt Date: 20131011
  Transmission Date: 20140711
  Serious: Yes (Hospitalization)
  Sender: FDA-Public Use
  Company Number: AUR-APL-2013-08242

PATIENT
  Age: 80 Year
  Sex: Female

DRUGS (5)
  1. MIRTAZAPINE (MIRTAZAPINE) [Suspect]
     Indication: DEPRESSION
  2. TAVOR (LORAZEPAM) [Concomitant]
  3. DESLORATADIN (DESLORATIDINE) [Concomitant]
  4. TENORMIN (ATENOLOL) [Concomitant]
  5. VOTUM PLUS (BENICAR HCT) [Concomitant]

REACTIONS (3)
  - Hyponatraemia [None]
  - Syncope [None]
  - Inappropriate antidiuretic hormone secretion [None]
